FAERS Safety Report 22999906 (Version 2)
Quarter: 2023Q4

REPORT INFORMATION
  Report Type: Spontaneous
  Country: US (occurrence: None)
  Receive Date: 20230928
  Receipt Date: 20231110
  Transmission Date: 20240110
  Serious: Yes (Other)
  Sender: FDA-Public Use
  Company Number: 2023A214836

PATIENT
  Age: 23585 Day
  Weight: 85.7 kg

DRUGS (1)
  1. FASENRA [Suspect]
     Active Substance: BENRALIZUMAB
     Route: 058
     Dates: start: 202203

REACTIONS (9)
  - Hepatic enzyme increased [Unknown]
  - Blood calcium increased [Unknown]
  - Pneumonia [Unknown]
  - Weight increased [Unknown]
  - Glucose tolerance impaired [Unknown]
  - COVID-19 [Unknown]
  - Chest pain [Unknown]
  - Pyrexia [Unknown]
  - Intentional product misuse [Unknown]

NARRATIVE: CASE EVENT DATE: 20230101
